FAERS Safety Report 7668388-6 (Version None)
Quarter: 2011Q3

REPORT INFORMATION
  Report Type: 
  Country: None (occurrence: None)
  Receive Date: 20110808
  Receipt Date: 20110803
  Transmission Date: 20111222
  Serious: Yes (Other)
  Sender: FDA-Public Use
  Company Number: CA-BAYER-2011-056574

PATIENT
  Age: 37 Year
  Sex: Female

DRUGS (1)
  1. MIRENA [Suspect]
     Indication: MENORRHAGIA
     Dosage: UNK
     Dates: start: 20110617, end: 20110623

REACTIONS (9)
  - FATIGUE [None]
  - ASTHENIA [None]
  - PRODUCT QUALITY ISSUE [None]
  - HYPOAESTHESIA [None]
  - BALANCE DISORDER [None]
  - HEADACHE [None]
  - CEREBROVASCULAR ACCIDENT [None]
  - FEELING ABNORMAL [None]
  - MEMORY IMPAIRMENT [None]
